FAERS Safety Report 10038005 (Version 1)
Quarter: 2014Q1

REPORT INFORMATION
  Report Type: Spontaneous
  Country: US (occurrence: None)
  Receive Date: 20140306
  Receipt Date: 20140306
  Transmission Date: 20141002
  Serious: Yes (Hospitalization, Other)
  Sender: FDA-Public Use
  Company Number: 163-21880-13082695

PATIENT
  Age: 72 Year
  Sex: Male

DRUGS (9)
  1. LIDOCAINE VISCOUS (LIDOCAINE HYDROCHLORIDE) [Concomitant]
  2. CIPROFLOXACIN (CIPROFLOXACIN) (TABLETS) [Concomitant]
  3. HYDROCODONE/ACETAMINOPHEN (REMEDEINE) [Concomitant]
  4. GLUCOSE (GLUCOSE) [Concomitant]
  5. OMEPRAZOLE (OMEPRAZOLE) (CAPSULES) [Concomitant]
  6. METFORMIN (METFORMIN) (TABLETS) [Concomitant]
  7. VITAMIN B-12 (CYANOCOBALAMIN) (TABLETS) [Concomitant]
  8. Q-DRYL (CAPSULES) [Concomitant]
  9. REVLIMID (LENALIDOMIDE) (5 MILLIGRAM, CAPSULES) [Suspect]
     Indication: MYELODYSPLASTIC SYNDROME
     Route: 048
     Dates: start: 20130529, end: 20130728

REACTIONS (6)
  - Anaemia [None]
  - Thrombosis [None]
  - Local swelling [None]
  - Headache [None]
  - Dry mouth [None]
  - Thrombocytopenia [None]
